FAERS Safety Report 19031362 (Version 1)
Quarter: 2021Q1

REPORT INFORMATION
  Report Type: Spontaneous
  Country: US (occurrence: US)
  Receive Date: 20210319
  Receipt Date: 20210319
  Transmission Date: 20210420
  Serious: No
  Sender: FDA-Public Use
  Company Number: US-JNJFOC-20210335035

PATIENT

DRUGS (1)
  1. IMODIUM [Suspect]
     Active Substance: LOPERAMIDE HYDROCHLORIDE
     Indication: COLITIS ULCERATIVE
     Dosage: ON AN EMERGENCY BASIS WHEN NEEDED.
     Route: 065

REACTIONS (3)
  - Product use in unapproved indication [Unknown]
  - Product packaging issue [Unknown]
  - Off label use [Unknown]
